FAERS Safety Report 5379576-6 (Version None)
Quarter: 2007Q3

REPORT INFORMATION
  Report Type: 
  Country: None (occurrence: None)
  Receive Date: 20070703
  Receipt Date: 20070620
  Transmission Date: 20080115
  Serious: Yes (Other)
  Sender: FDA-Public Use
  Company Number: 2007S1005328

PATIENT
  Age: 11 Year
  Sex: Female

DRUGS (4)
  1. MERCAPTAMINE BITARTRATE    (MERCAPTAMINE BITARTRATE) [Suspect]
     Indication: CYSTINOSIS
     Dosage: SEE IMAGE
     Route: 048
     Dates: start: 19961106
  2. POLYCITRA-LC [Concomitant]
  3. 1-ALPHA-HYDROXYCHOLECALCIFEROL [Concomitant]
  4. ENALAPRIL MALEATE [Concomitant]

REACTIONS (5)
  - ABDOMINAL PAIN [None]
  - BLOOD CREATININE INCREASED [None]
  - HAEMOGLOBIN DECREASED [None]
  - PROTEINURIA [None]
  - SYSTEMIC LUPUS ERYTHEMATOSUS [None]
